FAERS Safety Report 23995771 (Version 1)
Quarter: 2024Q2

REPORT INFORMATION
  Report Type: Spontaneous
  Country: CN (occurrence: CN)
  Receive Date: 20240620
  Receipt Date: 20240620
  Transmission Date: 20240715
  Serious: Yes (Life-Threatening, Hospitalization, Other)
  Sender: FDA-Public Use
  Company Number: CN-SA-SAC20240619001303

PATIENT
  Age: 61 Year
  Sex: Male
  Weight: 50 kg

DRUGS (3)
  1. APIDRA [Suspect]
     Active Substance: INSULIN GLULISINE
     Indication: Diabetes mellitus
     Dosage: 8 U-4 U-4 U IH BEFORE THREE MEALS
     Route: 058
     Dates: start: 20240617, end: 20240617
  2. METFORMIN HYDROCHLORIDE [Suspect]
     Active Substance: METFORMIN HYDROCHLORIDE
     Indication: Diabetes mellitus
     Dosage: 0.5 G, TID
     Route: 048
     Dates: start: 20170501, end: 20240617
  3. TRESIBA [Suspect]
     Active Substance: INSULIN DEGLUDEC
     Indication: Diabetes mellitus
     Dosage: 15 IU, QD
     Route: 058
     Dates: start: 20170501, end: 20240617

REACTIONS (9)
  - Hypoglycaemic encephalopathy [Recovered/Resolved]
  - Disorganised speech [Recovered/Resolved]
  - Hallucination [Recovered/Resolved]
  - Verbal abuse [Recovered/Resolved]
  - Delirium [Recovered/Resolved]
  - Blood glucose fluctuation [Recovered/Resolved]
  - Loss of consciousness [Recovered/Resolved]
  - Glycosylated haemoglobin increased [Recovered/Resolved]
  - Hypoglycaemia [Recovered/Resolved]

NARRATIVE: CASE EVENT DATE: 20240609
